FAERS Safety Report 6254531-2 (Version None)
Quarter: 2009Q3

REPORT INFORMATION
  Report Type: 
  Country: None (occurrence: None)
  Receive Date: 20090702
  Receipt Date: 20090629
  Transmission Date: 20100115
  Serious: Yes (Death, Hospitalization)
  Sender: FDA-Public Use
  Company Number: CH-BRISTOL-MYERS SQUIBB COMPANY-14565741

PATIENT
  Age: 67 Year
  Sex: Male

DRUGS (6)
  1. DASATINIB [Suspect]
     Indication: GASTROINTESTINAL STROMAL TUMOUR
     Route: 048
     Dates: start: 20080925, end: 20090301
  2. ZANIDIP [Concomitant]
     Route: 048
     Dates: start: 20030101
  3. RILMENIDINE [Concomitant]
     Route: 048
     Dates: start: 20030101
  4. SINGULAIR [Concomitant]
     Route: 048
  5. ZOXAN [Concomitant]
     Route: 048
  6. OMEXEL LP [Concomitant]
     Route: 048
     Dates: start: 20081201

REACTIONS (3)
  - ACUTE MYOCARDIAL INFARCTION [None]
  - INTESTINAL OBSTRUCTION [None]
  - PULMONARY EMBOLISM [None]
